FAERS Safety Report 25935197 (Version 1)
Quarter: 2025Q4

REPORT INFORMATION
  Report Type: Spontaneous
  Country: US (occurrence: US)
  Receive Date: 20251017
  Receipt Date: 20251017
  Transmission Date: 20260117
  Serious: Yes (Hospitalization)
  Sender: GALPHARM INTERNATIONAL
  Company Number: US-PERRIGO-25US012067

PATIENT

DRUGS (1)
  1. NASONEX [Suspect]
     Active Substance: MOMETASONE FUROATE
     Indication: Product used for unknown indication
     Dosage: UNKNOWN, UNKNOWN
     Route: 045

REACTIONS (7)
  - Bacterial infection [Unknown]
  - Skin discolouration [Unknown]
  - Swelling of nose [Unknown]
  - Eye swelling [Unknown]
  - Periorbital swelling [Unknown]
  - Epistaxis [Unknown]
  - Nasal dryness [Unknown]

NARRATIVE: CASE EVENT DATE: 20250901
